FAERS Safety Report 20256677 (Version 2)
Quarter: 2022Q1

REPORT INFORMATION
  Report Type: Spontaneous
  Country: US (occurrence: US)
  Receive Date: 20211230
  Receipt Date: 20220124
  Transmission Date: 20220423
  Serious: No
  Sender: FDA-Public Use
  Company Number: US-AIMMUNE THERAPEUTICS, INC.-2021AIMT00785

PATIENT

DRUGS (2)
  1. PALFORZIA [Suspect]
     Active Substance: PEANUT
     Indication: Food allergy
     Dosage: 300 MG, 1X/DAY
     Route: 048
     Dates: start: 20211206, end: 20211219
  2. PALFORZIA [Suspect]
     Active Substance: PEANUT
     Dosage: 300 MG, ONCE, LAST DOSE PRIOR TO EVENTS
     Route: 048
     Dates: start: 20211219, end: 20211219

REACTIONS (5)
  - Hypersensitivity [Recovered/Resolved]
  - Mouth swelling [Recovered/Resolved]
  - Lip swelling [Recovered/Resolved]
  - Dyspnoea [Recovered/Resolved]
  - Urticaria [Recovered/Resolved]

NARRATIVE: CASE EVENT DATE: 20211219
